FAERS Safety Report 17441037 (Version 1)
Quarter: 2020Q1

REPORT INFORMATION
  Report Type: Report from Study
  Country: CA (occurrence: CA)
  Receive Date: 20200220
  Receipt Date: 20200220
  Transmission Date: 20200409
  Serious: Yes (Other)
  Sender: FDA-Public Use
  Company Number: CA-JNJFOC-20190621055

PATIENT
  Age: 67 Year
  Sex: Female
  Weight: 57 kg

DRUGS (5)
  1. STELARA [Suspect]
     Active Substance: USTEKINUMAB
     Indication: CROHN^S DISEASE
     Route: 058
     Dates: start: 20181108
  2. STELARA [Suspect]
     Active Substance: USTEKINUMAB
     Route: 058
  3. ATENOLOL. [Concomitant]
     Active Substance: ATENOLOL
  4. IRBESARTAN. [Concomitant]
     Active Substance: IRBESARTAN
  5. HYDROCHLOROTHIAZIDE. [Concomitant]
     Active Substance: HYDROCHLOROTHIAZIDE

REACTIONS (10)
  - Influenza like illness [Unknown]
  - Tooth extraction [Recovered/Resolved]
  - Abdominal hernia [Unknown]
  - Malaise [Unknown]
  - Hypertension [Recovering/Resolving]
  - Tooth infection [Recovered/Resolved]
  - Rash [Unknown]
  - Blood potassium decreased [Unknown]
  - Diarrhoea [Not Recovered/Not Resolved]
  - Fatigue [Not Recovered/Not Resolved]

NARRATIVE: CASE EVENT DATE: 201906
